FAERS Safety Report 5812681-6 (Version None)
Quarter: 2008Q3

REPORT INFORMATION
  Report Type: 
  Country: None (occurrence: None)
  Receive Date: 20080717
  Receipt Date: 20080717
  Transmission Date: 20090109
  Serious: Yes (Death, Hospitalization)
  Sender: FDA-Public Use
  Company Number: CA-ABBOTT-08P-028-0457035-00

PATIENT
  Sex: Male

DRUGS (2)
  1. LUPRON DEPOT [Suspect]
     Indication: DRUG USE FOR UNKNOWN INDICATION
     Dates: start: 20070502, end: 20080302
  2. IMODIUM [Concomitant]
     Indication: DIARRHOEA

REACTIONS (4)
  - FALL [None]
  - GENERAL PHYSICAL HEALTH DETERIORATION [None]
  - JOINT INJURY [None]
  - RENAL FAILURE [None]
